FAERS Safety Report 6109706-X (Version None)
Quarter: 2009Q1

REPORT INFORMATION
  Report Type: 
  Country: None (occurrence: None)
  Receive Date: 20090310
  Receipt Date: 20080307
  Transmission Date: 20090719
  Serious: No
  Sender: FDA-Public Use
  Company Number: A0713920A

PATIENT
  Age: 48 Year
  Sex: Female

DRUGS (1)
  1. NICORETTE [Suspect]
     Dates: start: 20080304, end: 20080304

REACTIONS (3)
  - DYSPHONIA [None]
  - OROPHARYNGEAL DISCOMFORT [None]
  - THROAT IRRITATION [None]
